FAERS Safety Report 19169240 (Version 1)
Quarter: 2021Q2

REPORT INFORMATION
  Report Type: Spontaneous
  Country: US (occurrence: US)
  Receive Date: 20210422
  Receipt Date: 20210422
  Transmission Date: 20210717
  Serious: Yes (Other)
  Sender: FDA-Public Use
  Company Number: US-SA-2021SA130967

PATIENT

DRUGS (1)
  1. LEMTRADA [Suspect]
     Active Substance: ALEMTUZUMAB

REACTIONS (4)
  - Anosmia [Recovered/Resolved]
  - Cholecystitis [Unknown]
  - COVID-19 [Recovered/Resolved]
  - Thyroid disorder [Unknown]
